FAERS Safety Report 7991408-6 (Version None)
Quarter: 2011Q4

REPORT INFORMATION
  Report Type: 
  Country: None (occurrence: None)
  Receive Date: 20111219
  Receipt Date: 20111212
  Transmission Date: 20120403
  Serious: Yes (Hospitalization, Other)
  Sender: FDA-Public Use
  Company Number: US-BAYER-2011-029303

PATIENT
  Age: 28 Year
  Sex: Female
  Weight: 75 kg

DRUGS (9)
  1. EFFEXOR XR [Concomitant]
     Indication: ANXIETY
     Dosage: UNK
     Dates: start: 20050101
  2. MULTI-VITAMIN [Concomitant]
  3. YASMIN [Suspect]
     Indication: MENSTRUAL CYCLE MANAGEMENT
     Dosage: UNK
     Dates: start: 20030101, end: 20040101
  4. EFFEXOR XR [Concomitant]
     Indication: DEPRESSION
  5. MYLANTS [Concomitant]
  6. NEXIUM [Concomitant]
  7. IBUPROFEN [Concomitant]
  8. YAZ [Suspect]
     Indication: MENSTRUAL CYCLE MANAGEMENT
     Dosage: UNK
     Dates: start: 20040101, end: 20090101
  9. ZOMIG [Concomitant]
     Indication: MIGRAINE

REACTIONS (9)
  - GALLBLADDER DISORDER [None]
  - INJURY [None]
  - LIVER DISORDER [None]
  - SEPSIS [None]
  - CHOLECYSTITIS CHRONIC [None]
  - PAIN [None]
  - FEAR OF DISEASE [None]
  - CHOLELITHIASIS [None]
  - ABDOMINAL ABSCESS [None]
